FAERS Safety Report 7787192-1 (Version None)
Quarter: 2011Q3

REPORT INFORMATION
  Report Type: 
  Country: None (occurrence: None)
  Receive Date: 20110927
  Receipt Date: 20110915
  Transmission Date: 20111222
  Serious: Yes (Other)
  Sender: FDA-Public Use
  Company Number: 1043846

PATIENT
  Age: 31 Year
  Sex: Male
  Weight: 60.5 kg

DRUGS (7)
  1. DACARBAZINE [Suspect]
     Indication: HODGKIN'S DISEASE
     Dosage: 600 MG MILLIGRAM(S), INTRAVENOUS (NOT OTHERWISE SPECIFIED)
     Route: 042
     Dates: start: 20110824, end: 20110824
  2. VINBLASTINE SULFATE [Concomitant]
  3. DOXORUBICIN HCL [Concomitant]
  4. (BLOEMYCIN) [Concomitant]
  5. NAPROXEN [Concomitant]
  6. NEVIRAPINE [Concomitant]
  7. EMTRICITABINE [Concomitant]

REACTIONS (3)
  - TACHYCARDIA [None]
  - TREMOR [None]
  - PYREXIA [None]
